FAERS Safety Report 8146846-8 (Version None)
Quarter: 2012Q1

REPORT INFORMATION
  Report Type: 
  Country: None (occurrence: None)
  Receive Date: 20120217
  Receipt Date: 20110811
  Transmission Date: 20120608
  Serious: No
  Sender: FDA-Public Use
  Company Number: US-ABBOTT-11P-163-0845388-00

PATIENT
  Sex: Female
  Weight: 63.56 kg

DRUGS (2)
  1. LISINOPRIL [Concomitant]
     Indication: PRODUCT USED FOR UNKNOWN INDICATION
     Route: 048
  2. SIMCOR [Suspect]
     Indication: PRODUCT USED FOR UNKNOWN INDICATION
     Dosage: 500/40MG, AT BEDTIME
     Route: 048
     Dates: start: 20110727

REACTIONS (6)
  - FATIGUE [None]
  - SLUGGISHNESS [None]
  - HEADACHE [None]
  - MALAISE [None]
  - HYPERTENSION [None]
  - HYPOTENSION [None]
